FAERS Safety Report 13061253 (Version 2)
Quarter: 2017Q1

REPORT INFORMATION
  Report Type: Spontaneous
  Country: CO (occurrence: CO)
  Receive Date: 20161226
  Receipt Date: 20170102
  Transmission Date: 20170428
  Serious: Yes (Hospitalization, Other)
  Sender: FDA-Public Use
  Company Number: CO-UCBSA-2016049184

PATIENT
  Age: 8 Year
  Sex: Female
  Weight: 40 kg

DRUGS (2)
  1. KEPPRA [Suspect]
     Active Substance: LEVETIRACETAM
     Indication: PRODUCT USED FOR UNKNOWN INDICATION
     Dosage: 500 MG, Z
     Dates: start: 201607, end: 2016
  2. KEPPRA [Suspect]
     Active Substance: LEVETIRACETAM
     Dosage: 1 TABLET IN THE MORNING AND 1 TABLET AND A HALF IN THE NIGHT, 500MG
     Dates: start: 20161123, end: 20161124

REACTIONS (3)
  - Seizure [Recovered/Resolved]
  - Product quality issue [Unknown]
  - Drug ineffective [Unknown]

NARRATIVE: CASE EVENT DATE: 20161123
